FAERS Safety Report 23946387 (Version 1)
Quarter: 2024Q2

REPORT INFORMATION
  Report Type: Report from Study
  Country: ES (occurrence: ES)
  Receive Date: 20240606
  Receipt Date: 20240606
  Transmission Date: 20240716
  Serious: Yes (Other)
  Sender: FDA-Public Use
  Company Number: ES-ELI_LILLY_AND_COMPANY-ES202305009056

PATIENT
  Age: 48 Year
  Sex: Female

DRUGS (17)
  1. LYRICA [Suspect]
     Active Substance: PREGABALIN
     Indication: Musculoskeletal pain
     Dosage: UNK, QD (TID)
     Route: 065
  2. LYRICA [Suspect]
     Active Substance: PREGABALIN
     Indication: Muscle contracture
  3. TRAMADOL [Suspect]
     Active Substance: TRAMADOL\TRAMADOL HYDROCHLORIDE
     Indication: Musculoskeletal pain
     Dosage: UNK
     Route: 065
  4. ABEMACICLIB [Suspect]
     Active Substance: ABEMACICLIB
     Indication: Breast cancer
     Dosage: 100 MG, UNKNOWN
     Route: 048
  5. ABEMACICLIB [Suspect]
     Active Substance: ABEMACICLIB
     Dosage: 200 MILLIGRAM, QD, 100 MG, BID
     Route: 048
  6. ABEMACICLIB [Suspect]
     Active Substance: ABEMACICLIB
     Dosage: 100 MILLIGRAM
     Route: 048
     Dates: start: 202312
  7. ABEMACICLIB [Suspect]
     Active Substance: ABEMACICLIB
     Dosage: 150 MILLIGRAM
     Route: 048
  8. ABEMACICLIB [Suspect]
     Active Substance: ABEMACICLIB
     Dosage: 150 MILLIGRAM
     Route: 048
     Dates: start: 20230428
  9. ABEMACICLIB [Suspect]
     Active Substance: ABEMACICLIB
     Dosage: 150 MILLIGRAM
     Route: 048
  10. LUTRATE DEPOT [Suspect]
     Active Substance: LEUPROLIDE ACETATE
     Indication: Breast cancer
     Dosage: UNK, MONTHLY
     Route: 065
  11. ZALDIAR [Suspect]
     Active Substance: ACETAMINOPHEN\TRAMADOL HYDROCHLORIDE
     Indication: Muscle contracture
     Dosage: UNK UNK, TID
     Route: 065
  12. LOPERAMIDE HYDROCHLORIDE [Suspect]
     Active Substance: LOPERAMIDE HYDROCHLORIDE
     Indication: Diarrhoea
     Dosage: UNK
     Route: 065
  13. OMEPRAZOLE [Concomitant]
     Active Substance: DONEPEZIL HYDROCHLORIDE\OMEPRAZOLE\OMEPRAZOLE MAGNESIUM
     Indication: Product used for unknown indication
     Dosage: UNK
     Route: 065
  14. EXEMESTANE [Concomitant]
     Active Substance: EXEMESTANE
     Indication: Breast cancer
     Dosage: UNK
     Route: 065
  15. MEDEBIOTIN [Concomitant]
     Indication: Hair disorder
     Dosage: UNK
     Route: 065
  16. MEDEBIOTIN [Concomitant]
     Indication: Nail disorder
  17. ENALAPRIL [Concomitant]
     Active Substance: ENALAPRIL
     Indication: Product used for unknown indication
     Dosage: 20 MILLIGRAM, QD,10 MG, BID
     Route: 065

REACTIONS (24)
  - Diarrhoea [Recovering/Resolving]
  - Sciatica [Recovering/Resolving]
  - Nausea [Recovered/Resolved]
  - Pruritus [Recovering/Resolving]
  - Hypersensitivity [Recovered/Resolved]
  - Feeling abnormal [Unknown]
  - Liver disorder [Recovered/Resolved]
  - Constipation [Recovering/Resolving]
  - Arthralgia [Recovering/Resolving]
  - Alopecia [Recovering/Resolving]
  - Renal disorder [Recovering/Resolving]
  - Asthenia [Recovering/Resolving]
  - Fatigue [Recovering/Resolving]
  - Vision blurred [Recovering/Resolving]
  - Muscle contracture [Recovering/Resolving]
  - Musculoskeletal pain [Recovering/Resolving]
  - Ligament pain [Recovering/Resolving]
  - Libido decreased [Recovering/Resolving]
  - Tendonitis [Recovering/Resolving]
  - Musculoskeletal stiffness [Recovering/Resolving]
  - Abnormal faeces [Recovering/Resolving]
  - Faeces hard [Unknown]
  - Lymphoedema [Unknown]
  - Eyelid pain [Recovered/Resolved]
